FAERS Safety Report 10134240 (Version 2)
Quarter: 2014Q2

REPORT INFORMATION
  Report Type: Spontaneous
  Country: JP (occurrence: JP)
  Receive Date: 20140428
  Receipt Date: 20140523
  Transmission Date: 20141212
  Serious: Yes (Death, Hospitalization, Other)
  Sender: FDA-Public Use
  Company Number: JP-TAKEDA-2014TJP005437

PATIENT
  Age: 84 Year
  Sex: 0

DRUGS (2)
  1. ROZEREM TABLETS 8MG. [Suspect]
     Indication: INSOMNIA
     Dosage: 8 MG, QD
     Route: 048
     Dates: start: 20140417, end: 20140418
  2. DAIKENTYUTO [Concomitant]
     Dosage: UNK
     Route: 048

REACTIONS (2)
  - Disseminated intravascular coagulation [Fatal]
  - Hepatic function abnormal [Not Recovered/Not Resolved]
